FAERS Safety Report 12619901 (Version 1)
Quarter: 2016Q3

REPORT INFORMATION
  Report Type: Spontaneous
  Country: MX (occurrence: MX)
  Receive Date: 20160803
  Receipt Date: 20160803
  Transmission Date: 20161109
  Serious: Yes (Hospitalization, Other)
  Sender: FDA-Public Use
  Company Number: MX-KADMON PHARMACEUTICALS, LLC-KAD201607-002851

PATIENT
  Age: 56 Year
  Sex: Female
  Weight: 60 kg

DRUGS (10)
  1. FOLIVITAL [Concomitant]
  2. RIBAVIRIN. [Suspect]
     Active Substance: RIBAVIRIN
     Indication: HEPATITIS C
     Dosage: TABLET
     Route: 048
  3. PANTECTA [Concomitant]
     Active Substance: PANTOPRAZOLE SODIUM
     Route: 048
  4. CALTRATE + D (LEKOVIT CA) [Concomitant]
     Route: 048
  5. TRESIBA [Concomitant]
     Active Substance: INSULIN DEGLUDEC
     Route: 058
  6. CELLCEPT [Concomitant]
     Active Substance: MYCOPHENOLATE MOFETIL\MYCOPHENOLATE MOFETIL HYDROCHLORIDE
     Route: 048
  7. VIEKIRA PAK [Suspect]
     Active Substance: DASABUVIR\OMBITASVIR\PARITAPREVIR\RITONAVIR
     Indication: HEPATITIS C
     Route: 048
     Dates: start: 20151215, end: 20160426
  8. PROGRAF [Concomitant]
     Active Substance: TACROLIMUS\TACROLIMUS ANHYDROUS
     Route: 048
  9. METICORTEN [Concomitant]
     Active Substance: PREDNISONE
     Route: 048
  10. VYTORIN (INEGY) [Concomitant]
     Route: 048

REACTIONS (7)
  - Peritoneal disorder [Unknown]
  - Gastrointestinal anastomotic leak [Unknown]
  - Hyperbilirubinaemia [Recovered/Resolved]
  - Urinary tract infection [Unknown]
  - Jaundice [Unknown]
  - Sepsis [Unknown]
  - Haemolysis [Unknown]

NARRATIVE: CASE EVENT DATE: 20160412
